FAERS Safety Report 16217695 (Version 2)
Quarter: 2019Q3

REPORT INFORMATION
  Report Type: Report from Study
  Country: US (occurrence: US)
  Receive Date: 20190419
  Receipt Date: 20190910
  Transmission Date: 20191004
  Serious: No
  Sender: FDA-Public Use
  Company Number: US-SA-2019SA108521

PATIENT
  Age: 61 Year
  Sex: Female

DRUGS (5)
  1. TERIFLUNOMIDE. [Suspect]
     Active Substance: TERIFLUNOMIDE
     Indication: MULTIPLE SCLEROSIS
     Dosage: 14 MG, QD
     Route: 048
     Dates: start: 20190317
  2. ZOFRAN [Concomitant]
     Active Substance: ONDANSETRON HYDROCHLORIDE
     Indication: NAUSEA
     Dosage: UNK
  3. TECFIDERA [Concomitant]
     Active Substance: DIMETHYL FUMARATE
     Dosage: UNK
  4. ATORVASTATIN [Suspect]
     Active Substance: ATORVASTATIN
     Dosage: UNK
  5. FLECTOR [Concomitant]
     Active Substance: DICLOFENAC EPOLAMINE
     Dosage: UNK
     Dates: start: 201907

REACTIONS (9)
  - Memory impairment [Not Recovered/Not Resolved]
  - Condition aggravated [Not Recovered/Not Resolved]
  - Alopecia [Not Recovered/Not Resolved]
  - Erythema [Unknown]
  - Sunburn [Not Recovered/Not Resolved]
  - Anaemia [Not Recovered/Not Resolved]
  - Pruritus [Unknown]
  - Skin exfoliation [Not Recovered/Not Resolved]
  - Photosensitivity reaction [Not Recovered/Not Resolved]

NARRATIVE: CASE EVENT DATE: 2019
